FAERS Safety Report 12456266 (Version 2)
Quarter: 2016Q4

REPORT INFORMATION
  Report Type: Spontaneous
  Country: US (occurrence: US)
  Receive Date: 20160610
  Receipt Date: 20161020
  Transmission Date: 20170207
  Serious: No
  Sender: FDA-Public Use
  Company Number: US-GLAXOSMITHKLINE-US2016083122

PATIENT
  Age: 68 Year
  Sex: Female

DRUGS (1)
  1. PREVACID 24 HR [Suspect]
     Active Substance: LANSOPRAZOLE
     Indication: GASTROOESOPHAGEAL REFLUX DISEASE
     Dosage: 30 MG, UNK

REACTIONS (4)
  - Chest pain [Unknown]
  - Incorrect dose administered [Unknown]
  - Off label use [Unknown]
  - Tinea pedis [Not Recovered/Not Resolved]
